FAERS Safety Report 5255386-5 (Version None)
Quarter: 2007Q1

REPORT INFORMATION
  Report Type: 
  Country: None (occurrence: None)
  Receive Date: 20070305
  Receipt Date: 20070226
  Transmission Date: 20070707
  Serious: Yes (Hospitalization)
  Sender: FDA-Public Use
  Company Number: JP-ROCHE-479780

PATIENT
  Age: 30 Year
  Sex: Male

DRUGS (10)
  1. LUPRAC [Suspect]
     Indication: CARDIAC FAILURE
     Route: 048
     Dates: start: 20061227, end: 20070104
  2. ACARDI [Concomitant]
     Dates: start: 20060215
  3. NEUQUINON [Concomitant]
     Dates: start: 20060215
  4. MUCOSTA [Concomitant]
     Dates: start: 20060215
  5. DIART [Concomitant]
     Dates: start: 20060215
  6. ASPENONE [Concomitant]
     Dates: start: 20060215, end: 20070104
  7. ALDACTONE [Concomitant]
     Dates: start: 20060215
  8. TAKEPRON [Concomitant]
     Dates: start: 20060215, end: 20070104
  9. LASIX [Concomitant]
     Dates: start: 20060215, end: 20070104
  10. ARTIST [Concomitant]
     Dates: start: 20060215, end: 20070104

REACTIONS (1)
  - HEPATIC FUNCTION ABNORMAL [None]
